FAERS Safety Report 5637069-2 (Version None)
Quarter: 2008Q1

REPORT INFORMATION
  Report Type: 
  Country: None (occurrence: None)
  Receive Date: 20080225
  Receipt Date: 20070807
  Transmission Date: 20080703
  Serious: No
  Sender: FDA-Public Use
  Company Number: US-BRISTOL-MYERS SQUIBB COMPANY-13870670

PATIENT

DRUGS (2)
  1. METFORMIN HCL [Suspect]
  2. ACTOS [Suspect]

REACTIONS (1)
  - GASTROINTESTINAL DISORDER [None]
